FAERS Safety Report 4535231-3 (Version None)
Quarter: 2004Q4

REPORT INFORMATION
  Report Type: 
  Country: None (occurrence: None)
  Receive Date: 20041214
  Receipt Date: 20041008
  Transmission Date: 20050328
  Serious: No
  Sender: FDA-Public Use
  Company Number: 2004238351US

PATIENT
  Sex: Female

DRUGS (2)
  1. BEXTRA [Suspect]
  2. CELEBREX [Suspect]

REACTIONS (4)
  - ACTIVITIES OF DAILY LIVING IMPAIRED [None]
  - INSOMNIA [None]
  - NERVOUSNESS [None]
  - THINKING ABNORMAL [None]
